FAERS Safety Report 9280274 (Version 2)
Quarter: 2013Q2

REPORT INFORMATION
  Report Type: Spontaneous
  Country: US (occurrence: US)
  Receive Date: 20130509
  Receipt Date: 20130517
  Transmission Date: 20140414
  Serious: No
  Sender: FDA-Public Use
  Company Number: US-BAYER-2013-056477

PATIENT
  Age: 58 Year
  Sex: Male

DRUGS (2)
  1. AVELOX [Suspect]
     Indication: SINUSITIS
     Dosage: 400 MG, QD
     Route: 048
     Dates: start: 201304
  2. ADVAIR [Concomitant]

REACTIONS (4)
  - Pruritus [Not Recovered/Not Resolved]
  - Ageusia [Not Recovered/Not Resolved]
  - Anosmia [Not Recovered/Not Resolved]
  - Sperm concentration decreased [Not Recovered/Not Resolved]
